FAERS Safety Report 25084665 (Version 1)
Quarter: 2025Q1

REPORT INFORMATION
  Report Type: Report from Study
  Country: US (occurrence: US)
  Receive Date: 20250317
  Receipt Date: 20250317
  Transmission Date: 20250408
  Serious: Yes (Death)
  Sender: BAYER HEALTHCARE PHARMACEUTICALS INC.
  Company Number: US-BAYER-2025A035668

PATIENT
  Sex: Female
  Weight: 117.91 kg

DRUGS (42)
  1. ADEMPAS [Suspect]
     Active Substance: RIOCIGUAT
     Indication: Pulmonary arterial hypertension
     Dates: start: 20241127
  2. ADEMPAS [Suspect]
     Active Substance: RIOCIGUAT
     Indication: Pulmonary arterial hypertension
     Dosage: 2 MG, TID
     Route: 048
  3. DOCUSATE SODIUM [Concomitant]
     Active Substance: DOCUSATE SODIUM
  4. CLARITIN [Concomitant]
     Active Substance: LORATADINE
  5. ALCOHOL SWABS [Concomitant]
     Active Substance: ISOPROPYL ALCOHOL
  6. TYLENOL [Concomitant]
     Active Substance: ACETAMINOPHEN
  7. Acidophilus/pectin [Concomitant]
  8. EZETIMIBE [Concomitant]
     Active Substance: EZETIMIBE
  9. POTASSIUM CHLORIDE [Concomitant]
     Active Substance: POTASSIUM CHLORIDE
  10. METOLAZONE [Concomitant]
     Active Substance: METOLAZONE
  11. HUMALOG [Concomitant]
     Active Substance: INSULIN LISPRO
  12. TYLENOL EXTRA STRENGTH [Concomitant]
     Active Substance: ACETAMINOPHEN
  13. HYDROXYZINE PAMOATE [Concomitant]
     Active Substance: HYDROXYZINE PAMOATE
  14. JARDIANCE [Concomitant]
     Active Substance: EMPAGLIFLOZIN
  15. MAGNESIUM OXIDE [Concomitant]
     Active Substance: MAGNESIUM OXIDE
  16. MELATONIN [Concomitant]
     Active Substance: MELATONIN
  17. OPSUMIT [Concomitant]
     Active Substance: MACITENTAN
  18. LASIX [Concomitant]
     Active Substance: FUROSEMIDE
  19. ALBUTEROL SULFATE [Concomitant]
     Active Substance: ALBUTEROL SULFATE
  20. CLOPIDOGREL [Concomitant]
     Active Substance: CLOPIDOGREL BISULFATE
  21. BISACODYL [Concomitant]
     Active Substance: BISACODYL
  22. LACTOBACILLUS ACIDOPHILUS [Concomitant]
     Active Substance: LACTOBACILLUS ACIDOPHILUS
  23. OZEMPIC [Concomitant]
     Active Substance: SEMAGLUTIDE
  24. FAMOTIDINE [Concomitant]
     Active Substance: FAMOTIDINE
  25. TANDEM [Concomitant]
     Active Substance: FERROUS ASPARTO GLYCINATE\FERROUS FUMARATE
  26. TRAMADOL HCL [Concomitant]
     Active Substance: TRAMADOL HYDROCHLORIDE
  27. ASPIRIN [Concomitant]
     Active Substance: ASPIRIN
  28. MODAFINIL [Concomitant]
     Active Substance: MODAFINIL
  29. PRALUENT [Concomitant]
     Active Substance: ALIROCUMAB
  30. VASCEPA [Concomitant]
     Active Substance: ICOSAPENT ETHYL
  31. ZINC [Concomitant]
     Active Substance: ZINC
  32. METOPROLOL TARTRATE [Concomitant]
     Active Substance: METOPROLOL TARTRATE
  33. ESCITALOPRAM OXALATE [Concomitant]
     Active Substance: ESCITALOPRAM OXALATE
  34. HYDRALAZINE HCL [Concomitant]
     Active Substance: HYDRALAZINE HYDROCHLORIDE
  35. HYOSCYAMINE SULFATE [Concomitant]
     Active Substance: HYOSCYAMINE SULFATE
  36. PRAMIPEXOLE DIHYDROCHLORIDE [Concomitant]
     Active Substance: PRAMIPEXOLE DIHYDROCHLORIDE
  37. VITAMIN D3 [Concomitant]
     Active Substance: CHOLECALCIFEROL
  38. ONDANSETRON HYDROCHLORIDE [Concomitant]
     Active Substance: ONDANSETRON HYDROCHLORIDE
  39. ARIPIPRAZOLE [Concomitant]
     Active Substance: ARIPIPRAZOLE
  40. LOSARTAN POTASSIUM [Concomitant]
     Active Substance: LOSARTAN POTASSIUM
  41. FERROUS SULFATE [Concomitant]
     Active Substance: FERROUS SULFATE
  42. GVOKE KIT [Concomitant]
     Active Substance: GLUCAGON

REACTIONS (1)
  - Death [Fatal]
